FAERS Safety Report 22336372 (Version 1)
Quarter: 2023Q2

REPORT INFORMATION
  Report Type: Report from Study
  Country: US (occurrence: US)
  Receive Date: 20230518
  Receipt Date: 20230518
  Transmission Date: 20230722
  Serious: Yes (Hospitalization)
  Sender: FDA-Public Use
  Company Number: US-ABBVIE-4728450

PATIENT
  Age: 59 Year
  Sex: Female

DRUGS (2)
  1. HUMIRA [Suspect]
     Active Substance: ADALIMUMAB
     Indication: Rheumatoid arthritis
     Route: 058
     Dates: start: 20170520
  2. HUMIRA [Suspect]
     Active Substance: ADALIMUMAB
     Route: 058
     Dates: start: 2023

REACTIONS (7)
  - Product prescribing issue [Recovered/Resolved]
  - Infusion [Recovered/Resolved]
  - Sluggishness [Recovered/Resolved]
  - Feeling abnormal [Unknown]
  - Infusion [Recovered/Resolved]
  - Asthenia [Unknown]
  - Swelling [Unknown]

NARRATIVE: CASE EVENT DATE: 20170301
